FAERS Safety Report 5192366-2 (Version None)
Quarter: 2006Q4

REPORT INFORMATION
  Report Type: 
  Country: None (occurrence: None)
  Receive Date: 20061227
  Receipt Date: 20061206
  Transmission Date: 20070319
  Serious: Yes (Hospitalization)
  Sender: FDA-Public Use
  Company Number: FR-PFIZER INC-2006154026

PATIENT
  Age: 2 Month
  Sex: Female

DRUGS (4)
  1. VIRACEPT [Suspect]
     Indication: SYSTEMIC ANTIVIRAL TREATMENT
     Dosage: DAILY DOSE:250MG
     Route: 048
  2. COMBIVIR [Suspect]
     Indication: SYSTEMIC ANTIVIRAL TREATMENT
     Route: 048
  3. VIDEX [Suspect]
     Indication: SYSTEMIC ANTIVIRAL TREATMENT
     Route: 048
  4. RETROVIR [Suspect]
     Indication: SYSTEMIC ANTIVIRAL TREATMENT
     Route: 048

REACTIONS (2)
  - CONVULSION [None]
  - STRABISMUS [None]
